FAERS Safety Report 10152550 (Version 1)
Quarter: 2014Q2

REPORT INFORMATION
  Report Type: Spontaneous
  Country: US (occurrence: US)
  Receive Date: 20140505
  Receipt Date: 20140505
  Transmission Date: 20141212
  Serious: No
  Sender: FDA-Public Use
  Company Number: US-BAYER-2014-061738

PATIENT
  Age: 72 Year
  Sex: Male
  Weight: 70.75 kg

DRUGS (3)
  1. ALEVE TABLET [Suspect]
     Indication: BACK PAIN
     Dosage: 1 DF, PRN
     Route: 048
  2. NEXIUM [Concomitant]
  3. AMLODIPINE BESYLATE [Concomitant]

REACTIONS (4)
  - Drug effect delayed [None]
  - Incorrect drug administration duration [None]
  - Urticaria [Recovered/Resolved]
  - Pruritus [Recovered/Resolved]
